FAERS Safety Report 9204413 (Version 3)
Quarter: 2013Q3

REPORT INFORMATION
  Report Type: Spontaneous
  Country: US (occurrence: None)
  Receive Date: 20130329
  Receipt Date: 20130916
  Transmission Date: 20140515
  Serious: Yes (Hospitalization)
  Sender: FDA-Public Use
  Company Number: JPI-P-030643

PATIENT
  Age: 46 Year
  Sex: Female
  Weight: 52 kg

DRUGS (2)
  1. XYREM [Suspect]
     Indication: CATAPLEXY
     Route: 048
     Dates: start: 20040506
  2. AMPHETAMINE AND DEXTROAMPHENTAMINE [Concomitant]

REACTIONS (4)
  - Mental disorder [None]
  - Suicide attempt [None]
  - Intentional overdose [None]
  - Unresponsive to stimuli [None]
